FAERS Safety Report 5366684-9 (Version None)
Quarter: 2007Q2

REPORT INFORMATION
  Report Type: 
  Country: None (occurrence: None)
  Receive Date: 20070622
  Receipt Date: 20060426
  Transmission Date: 20071010
  Serious: No
  Sender: FDA-Public Use
  Company Number: US-ASTRAZENECA-2006UW07467

PATIENT
  Age: 44 Year
  Sex: Male
  Weight: 85.2 kg

DRUGS (2)
  1. RHINOCORT [Suspect]
     Dosage: 60 METER SPRAY UNIT
     Route: 045
  2. DIPHENHYDRAMINE HCL [Concomitant]

REACTIONS (1)
  - SOMNOLENCE [None]
